FAERS Safety Report 8953089 (Version 2)
Quarter: 2012Q4

REPORT INFORMATION
  Report Type: 
  Country: FR (occurrence: FR)
  Receive Date: 20121205
  Receipt Date: 20121212
  Transmission Date: 20130627
  Serious: Yes (Hospitalization)
  Sender: FDA-Public Use
  Company Number: FR-JNJFOC-20121114873

PATIENT
  Age: 22 None
  Sex: Male
  Weight: 68 kg

DRUGS (2)
  1. STELARA [Suspect]
     Indication: PSORIASIS
     Route: 058
     Dates: start: 20120824
  2. STELARA [Suspect]
     Indication: PSORIASIS
     Route: 058
     Dates: start: 20110208

REACTIONS (4)
  - Viral pericarditis [Recovered/Resolved]
  - Diabetes mellitus inadequate control [Recovering/Resolving]
  - Diabetic ketoacidosis [Recovering/Resolving]
  - Headache [Unknown]
